FAERS Safety Report 21392325 (Version 1)
Quarter: 2022Q3

REPORT INFORMATION
  Report Type: Spontaneous
  Country: US (occurrence: None)
  Receive Date: 20220928
  Receipt Date: 20220928
  Transmission Date: 20221026
  Serious: Yes (Hospitalization)
  Sender: FDA-Public Use
  Company Number: None

PATIENT
  Age: 73 Year
  Sex: Female
  Weight: 54.9 kg

DRUGS (11)
  1. RECLAST [Suspect]
     Active Substance: ZOLEDRONIC ACID
     Indication: Osteoporosis
     Dates: start: 20220829, end: 20220829
  2. BACLOFEN [Concomitant]
     Active Substance: BACLOFEN
  3. KLONOPIN [Concomitant]
     Active Substance: CLONAZEPAM
  4. PRAVASTATIN [Concomitant]
     Active Substance: PRAVASTATIN
  5. LOSARTAN [Concomitant]
     Active Substance: LOSARTAN
  6. AMLODIPINE [Concomitant]
     Active Substance: AMLODIPINE BESYLATE
  7. LASIX [Concomitant]
     Active Substance: FUROSEMIDE
  8. VITAMINS [Concomitant]
     Active Substance: VITAMINS
  9. FISH OIL [Concomitant]
     Active Substance: FISH OIL
  10. CALCIUM [Concomitant]
     Active Substance: CALCIUM
  11. VITAMIN D [Concomitant]
     Active Substance: VITAMIN D NOS

REACTIONS (13)
  - Muscle twitching [None]
  - Hypertension [None]
  - Dysuria [None]
  - Muscle spasms [None]
  - Dystonia [None]
  - Posturing [None]
  - Dizziness [None]
  - Fall [None]
  - Cerebrovascular accident [None]
  - Drug hypersensitivity [None]
  - Blood creatinine increased [None]
  - Blood potassium decreased [None]
  - Blood potassium increased [None]

NARRATIVE: CASE EVENT DATE: 20220908
